FAERS Safety Report 7412986-1 (Version None)
Quarter: 2011Q2

REPORT INFORMATION
  Report Type: 
  Country: None (occurrence: None)
  Receive Date: 20110413
  Receipt Date: 20110411
  Transmission Date: 20111010
  Serious: Yes (Other)
  Sender: FDA-Public Use
  Company Number: US-MERCK-1103USA01414

PATIENT
  Age: 51 Year
  Sex: Female
  Weight: 65 kg

DRUGS (5)
  1. CYCLOPHOSPHAMIDE [Concomitant]
     Route: 042
     Dates: start: 20110223
  2. DEXAMETHASONE [Concomitant]
     Route: 042
     Dates: start: 20110223
  3. IVEMEND [Suspect]
     Indication: PROPHYLAXIS OF NAUSEA AND VOMITING
     Route: 041
     Dates: start: 20110208
  4. ALOXI [Concomitant]
     Route: 042
     Dates: start: 20110223
  5. DOCETAXEL [Concomitant]
     Route: 042
     Dates: start: 20110223

REACTIONS (1)
  - PHLEBITIS SUPERFICIAL [None]
